FAERS Safety Report 18403771 (Version 1)
Quarter: 2020Q4

REPORT INFORMATION
  Report Type: Spontaneous
  Country: SA (occurrence: SA)
  Receive Date: 20201020
  Receipt Date: 20201020
  Transmission Date: 20210114
  Serious: Yes (Other)
  Sender: FDA-Public Use
  Company Number: SA-ROCHE-2697834

PATIENT
  Age: 65 Year
  Sex: Female

DRUGS (10)
  1. CYCLOPHOSPHAMIDE. [Suspect]
     Active Substance: CYCLOPHOSPHAMIDE
     Indication: DIFFUSE LARGE B-CELL LYMPHOMA
     Dosage: 6 CYCLES RECEIVED
     Route: 065
     Dates: start: 20131024, end: 20140210
  2. CISPLATIN. [Suspect]
     Active Substance: CISPLATIN
     Indication: DIFFUSE LARGE B-CELL LYMPHOMA
     Dosage: 3 CYCLES RECEIVED, DAYS 1-4
     Route: 065
     Dates: start: 20180705, end: 20180914
  3. RITUXIMAB. [Suspect]
     Active Substance: RITUXIMAB
     Indication: DIFFUSE LARGE B-CELL LYMPHOMA
     Dosage: 6 CYCLES RECEIVED
     Route: 065
     Dates: start: 20131024, end: 20140210
  4. RITUXIMAB. [Suspect]
     Active Substance: RITUXIMAB
     Dosage: 3 CYCLES RECEIVED
     Route: 065
     Dates: start: 20180705, end: 20180914
  5. DOXORUBICIN [Suspect]
     Active Substance: DOXORUBICIN
     Indication: DIFFUSE LARGE B-CELL LYMPHOMA
     Dosage: 6 CYCLES RECEIVED
     Route: 065
     Dates: start: 20131024, end: 20140210
  6. VINCRISTINE [Suspect]
     Active Substance: VINCRISTINE
     Indication: DIFFUSE LARGE B-CELL LYMPHOMA
     Dosage: 6 CYCLES RECEIVED
     Route: 065
     Dates: start: 20131024, end: 20140210
  7. METHYLPREDNISOLONE. [Suspect]
     Active Substance: METHYLPREDNISOLONE
     Indication: DIFFUSE LARGE B-CELL LYMPHOMA
     Dosage: 3 CYCLES RECEIVED, DAYS 1-5
     Route: 065
     Dates: start: 20180705, end: 20180914
  8. PREDNISOLONE. [Suspect]
     Active Substance: PREDNISOLONE
     Indication: DIFFUSE LARGE B-CELL LYMPHOMA
     Dosage: 6 CYCLES RECEIVED
     Route: 065
     Dates: start: 20131024, end: 20140210
  9. ETOPOSIDE. [Suspect]
     Active Substance: ETOPOSIDE
     Indication: DIFFUSE LARGE B-CELL LYMPHOMA
     Dosage: 3 CYCLES RECEIVED, DAYS 1-4
     Route: 065
     Dates: start: 20180705, end: 20180914
  10. CYTARABINE. [Suspect]
     Active Substance: CYTARABINE
     Indication: DIFFUSE LARGE B-CELL LYMPHOMA
     Dosage: 3 CYCLES RECEIVED, 2 G/M2 DAY 5
     Route: 065
     Dates: start: 20180705, end: 20180914

REACTIONS (2)
  - Urinary tract infection [Unknown]
  - Jugular vein occlusion [Unknown]
